FAERS Safety Report 21864686 (Version 2)
Quarter: 2023Q1

REPORT INFORMATION
  Report Type: Spontaneous
  Country: US (occurrence: US)
  Receive Date: 20230116
  Receipt Date: 20230203
  Transmission Date: 20230417
  Serious: No
  Sender: FDA-Public Use
  Company Number: US-drreddys-SPO/USA/22/0158861

PATIENT
  Age: 66 Year
  Sex: Male

DRUGS (12)
  1. LENALIDOMIDE [Suspect]
     Active Substance: LENALIDOMIDE
     Indication: Plasma cell myeloma
     Dosage: TAKE 1 CAPSULE BY MOUTH EVERY DAY FOR 14 DAYS ON THEN 7 DAYS OFF
     Route: 048
     Dates: start: 20221017
  2. AMLODIPINE B CAP 5-10MG [Concomitant]
     Indication: Product used for unknown indication
     Dosage: 5-10MG
  3. FOLIC ACID TAB 1MG [Concomitant]
     Indication: Product used for unknown indication
  4. GABAPENTIN CAP 100MG [Concomitant]
     Indication: Product used for unknown indication
  5. IBUPROFEN [Concomitant]
     Active Substance: IBUPROFEN
     Indication: Product used for unknown indication
  6. LOSARTAN POT TAB 100MG [Concomitant]
     Indication: Product used for unknown indication
  7. MAGNESIUM TAB 400MG [Concomitant]
     Indication: Product used for unknown indication
  8. POTASSIUM CH PAC 20MEQ [Concomitant]
     Indication: Product used for unknown indication
  9. VITAMIN B12 SUB [Concomitant]
     Indication: Product used for unknown indication
  10. VITAMIN D3 CAP 25 MCG [Concomitant]
     Indication: Product used for unknown indication
  11. ACYCLOVIR [Concomitant]
     Active Substance: ACYCLOVIR
     Indication: Product used for unknown indication
  12. DEXAMETHASONE [Concomitant]
     Active Substance: DEXAMETHASONE
     Indication: Product used for unknown indication

REACTIONS (4)
  - Nausea [Not Recovered/Not Resolved]
  - Malaise [Not Recovered/Not Resolved]
  - Product dose omission issue [Unknown]
  - Product use issue [Unknown]
